FAERS Safety Report 18764282 (Version 2)
Quarter: 2021Q1

REPORT INFORMATION
  Report Type: Report from Study
  Country: AZ (occurrence: AZ)
  Receive Date: 20210120
  Receipt Date: 20210129
  Transmission Date: 20210419
  Serious: Yes (Death)
  Sender: FDA-Public Use
  Company Number: NVSC2021AZ011773

PATIENT
  Age: 53 Year
  Sex: Female

DRUGS (3)
  1. RISARG [RIBOCICLIB SUCCINATE] [Suspect]
     Active Substance: RIBOCICLIB SUCCINATE
     Indication: METASTASES TO LIVER
  2. RISARG [RIBOCICLIB SUCCINATE] [Suspect]
     Active Substance: RIBOCICLIB SUCCINATE
     Indication: BREAST CANCER METASTATIC
     Dosage: 200 MG, TID
     Route: 048
     Dates: start: 20201010, end: 20201110
  3. RISARG [RIBOCICLIB SUCCINATE] [Suspect]
     Active Substance: RIBOCICLIB SUCCINATE
     Indication: METASTASES TO BONE

REACTIONS (11)
  - Poisoning [Fatal]
  - Cachexia [Fatal]
  - Jaundice [Fatal]
  - Asthenia [Fatal]
  - Nausea [Fatal]
  - Ascites [Fatal]
  - Decreased appetite [Fatal]
  - Anaemia [Unknown]
  - Renal failure [Fatal]
  - Haemorrhagic diathesis [Fatal]
  - Vomiting [Fatal]

NARRATIVE: CASE EVENT DATE: 202010
